FAERS Safety Report 7979817-2 (Version None)
Quarter: 2011Q4

REPORT INFORMATION
  Report Type: 
  Country: None (occurrence: None)
  Receive Date: 20111214
  Receipt Date: 20111206
  Transmission Date: 20120403
  Serious: Yes (Other)
  Sender: FDA-Public Use
  Company Number: JP-ELI_LILLY_AND_COMPANY-JP201112000783

PATIENT
  Age: 55 Year
  Sex: Female

DRUGS (3)
  1. FOLIC ACID [Concomitant]
  2. ALIMTA [Suspect]
     Indication: PLEURAL MESOTHELIOMA MALIGNANT
     Route: 042
  3. VITAMIN B-12 [Concomitant]

REACTIONS (1)
  - MYOCARDIAL INFARCTION [None]
